FAERS Safety Report 8498509-7 (Version None)
Quarter: 2012Q3

REPORT INFORMATION
  Report Type: 
  Country: None (occurrence: None)
  Receive Date: 20120709
  Receipt Date: 20120625
  Transmission Date: 20120928
  Serious: Yes (Hospitalization, Other)
  Sender: FDA-Public Use
  Company Number: US-AMGEN-USASP2012029024

PATIENT
  Age: 40 Year
  Sex: Female
  Weight: 67.12 kg

DRUGS (12)
  1. METHOTREXATE [Concomitant]
     Dosage: 2.5 MG, UNK
  2. SYNTHROID [Concomitant]
     Dosage: UNK
  3. FOLIC ACID [Concomitant]
     Dosage: UNK
  4. PREDNISONE [Concomitant]
     Dosage: 1 MG, UNK
  5. MULTIVITAMIN                       /00097801/ [Concomitant]
     Dosage: UNK
  6. CALCIUM D                          /00944201/ [Concomitant]
     Dosage: UNK
  7. BIOTENE                            /00203502/ [Concomitant]
     Dosage: UNK
  8. FISH OIL [Concomitant]
     Dosage: UNK
  9. ENBREL [Suspect]
     Indication: RHEUMATOID ARTHRITIS
     Dosage: 50 MG, QWK
     Route: 058
     Dates: start: 20050211, end: 20120412
  10. CELEBREX [Concomitant]
     Dosage: 100 MG, UNK
  11. PREVACID [Concomitant]
     Dosage: 30 MG, UNK
  12. EYE DROPS [Concomitant]
     Dosage: UNK

REACTIONS (4)
  - STAPHYLOCOCCAL INFECTION [None]
  - PERIORBITAL CELLULITIS [None]
  - PHARYNGITIS STREPTOCOCCAL [None]
  - NASAL ABSCESS [None]
